FAERS Safety Report 5805359-6 (Version None)
Quarter: 2008Q3

REPORT INFORMATION
  Report Type: 
  Country: None (occurrence: None)
  Receive Date: 20080702
  Receipt Date: 20070606
  Transmission Date: 20090109
  Serious: Yes (Other)
  Sender: FDA-Public Use
  Company Number: HQWYE537907JUN07

PATIENT
  Age: 65 Year
  Sex: Male
  Weight: 90.8 kg

DRUGS (2)
  1. ADVIL [Suspect]
     Indication: PYREXIA
     Dosage: 1 TABLET 2 TO 3 TIMES DAILY, ORAL
     Route: 048
     Dates: start: 20040101, end: 20060101
  2. PRILOSEC [Concomitant]

REACTIONS (1)
  - DYSPHAGIA [None]
